FAERS Safety Report 7823542-5 (Version None)
Quarter: 2011Q4

REPORT INFORMATION
  Report Type: 
  Country: None (occurrence: None)
  Receive Date: 20111019
  Receipt Date: 20111007
  Transmission Date: 20120403
  Serious: Yes (Other)
  Sender: FDA-Public Use
  Company Number: JP-PFIZER INC-2011246506

PATIENT
  Age: 86 Year
  Sex: Male
  Weight: 56 kg

DRUGS (5)
  1. LEVOLEUCOVORIN CALCIUM [Concomitant]
     Indication: COLORECTAL CANCER
     Dosage: 300 MG/BODY (197.4 MG/M2)
     Route: 041
     Dates: start: 20110330, end: 20110530
  2. FLUOROURACIL [Concomitant]
     Indication: COLORECTAL CANCER
     Dosage: 600 MG/BODY (394.7 MG/M2)
     Route: 040
     Dates: start: 20110330, end: 20110530
  3. AVASTIN [Concomitant]
     Indication: COLORECTAL CANCER
     Dosage: 260 MG/BODY
     Route: 041
     Dates: start: 20110516, end: 20110530
  4. CAMPTOSAR [Suspect]
     Indication: COLORECTAL CANCER
     Dosage: 220 MG/BODY (144.7 MG/M2)
     Route: 041
     Dates: start: 20110330, end: 20110530
  5. FLUOROURACIL [Concomitant]
     Dosage: 3500 MG/BODY/D1-2 (2302.6 MG/M2/D1-2)
     Route: 041
     Dates: start: 20110330, end: 20110530

REACTIONS (1)
  - MALAISE [None]
